FAERS Safety Report 10205164 (Version 2)
Quarter: 2014Q2

REPORT INFORMATION
  Report Type: Spontaneous
  Country: US (occurrence: US)
  Receive Date: 20140529
  Receipt Date: 20140606
  Transmission Date: 20141212
  Serious: Yes (Death, Hospitalization)
  Sender: FDA-Public Use
  Company Number: US-JNJFOC-20140518691

PATIENT
  Age: 62 Year
  Sex: Male

DRUGS (28)
  1. IMBRUVICA [Suspect]
     Indication: CHRONIC LYMPHOCYTIC LEUKAEMIA
     Route: 048
     Dates: start: 20140214, end: 201404
  2. SIROLIMUS [Concomitant]
     Route: 048
  3. OMEPRAZOLE [Concomitant]
     Route: 048
  4. ACYCLOVIR [Concomitant]
     Route: 048
  5. ACYCLOVIR [Concomitant]
     Route: 048
     Dates: start: 20140122
  6. XANAX [Concomitant]
     Route: 048
  7. ZOFRAN [Concomitant]
     Indication: NAUSEA
     Route: 048
  8. TEMAZEPAM [Concomitant]
     Route: 048
  9. TRAMADOL [Concomitant]
     Indication: PAIN
  10. NEUPOGEN [Concomitant]
     Indication: ANTINEUTROPHIL CYTOPLASMIC ANTIBODY DECREASED
     Route: 058
  11. VORICONAZOLE [Concomitant]
     Route: 048
     Dates: start: 20131226
  12. OXYCODONE [Concomitant]
     Indication: NECK PAIN
     Route: 048
  13. PROAIR(SALBUTAMOL SULFATE) [Concomitant]
     Route: 055
  14. MAGNESIUM [Concomitant]
     Route: 048
     Dates: start: 20140117
  15. ALBUTEROL [Concomitant]
     Route: 055
  16. BUDESONIDE [Concomitant]
  17. BUDESONIDE [Concomitant]
  18. KEPPRA [Concomitant]
     Route: 048
  19. BECLOMETHASONE [Concomitant]
     Route: 048
  20. ZYPREXA [Concomitant]
     Route: 048
  21. PREDNISONE [Concomitant]
     Route: 048
  22. VITAMIN D [Concomitant]
     Route: 048
  23. ANDROGEL [Concomitant]
     Route: 061
  24. URSODIOL [Concomitant]
     Route: 048
  25. AMBIEN [Concomitant]
     Route: 048
  26. NORMAL SALINE [Concomitant]
     Route: 042
  27. RITUXAN [Concomitant]
  28. CYCLOSPORIN [Concomitant]
     Route: 048

REACTIONS (11)
  - Pneumonia [Fatal]
  - Disease progression [Fatal]
  - Graft versus host disease in skin [Not Recovered/Not Resolved]
  - Skin hyperpigmentation [Unknown]
  - Iron overload [Not Recovered/Not Resolved]
  - Liver function test abnormal [Recovering/Resolving]
  - Jaundice [Unknown]
  - Visual acuity reduced [Unknown]
  - Pruritus [Unknown]
  - Dry mouth [Unknown]
  - Dry skin [Unknown]
